FAERS Safety Report 11151023 (Version 1)
Quarter: 2015Q2

REPORT INFORMATION
  Report Type: Report from Study
  Country: US (occurrence: US)
  Receive Date: 20150601
  Receipt Date: 20150601
  Transmission Date: 20150821
  Serious: Yes (Death)
  Sender: FDA-Public Use
  Company Number: US-ASTELLAS-2015US015981

PATIENT
  Sex: Male

DRUGS (14)
  1. ZOMETA [Concomitant]
     Active Substance: ZOLEDRONIC ACID
     Indication: PRODUCT USED FOR UNKNOWN INDICATION
     Route: 065
  2. CATHFLO ACTIVASE [Suspect]
     Active Substance: ALTEPLASE
     Indication: MEDICAL DEVICE COMPLICATION
     Route: 042
  3. CATHFLO ACTIVASE [Suspect]
     Active Substance: ALTEPLASE
     Indication: FROSTBITE
  4. ALIMTA [Concomitant]
     Active Substance: PEMETREXED DISODIUM
     Indication: PRODUCT USED FOR UNKNOWN INDICATION
     Dosage: 1000, OTHER
     Route: 065
     Dates: start: 20100716
  5. ERLOTINIB [Suspect]
     Active Substance: ERLOTINIB
     Indication: LUNG NEOPLASM MALIGNANT
     Route: 065
  6. ERLOTINIB [Suspect]
     Active Substance: ERLOTINIB
     Indication: FROSTBITE
  7. ERLOTINIB [Suspect]
     Active Substance: ERLOTINIB
     Indication: MEDICAL DEVICE COMPLICATION
  8. CATHFLO ACTIVASE [Suspect]
     Active Substance: ALTEPLASE
     Indication: LUNG NEOPLASM MALIGNANT
  9. ERLOTINIB [Suspect]
     Active Substance: ERLOTINIB
     Indication: IMPLANT SITE REACTION
  10. CATHFLO ACTIVASE [Suspect]
     Active Substance: ALTEPLASE
     Indication: IMPLANT SITE REACTION
  11. ALIMTA [Concomitant]
     Active Substance: PEMETREXED DISODIUM
     Dosage: 1000, OTHER
     Route: 065
     Dates: start: 20100819
  12. ZOFRAN                             /00955301/ [Concomitant]
     Active Substance: ONDANSETRON HYDROCHLORIDE
     Indication: PRODUCT USED FOR UNKNOWN INDICATION
     Route: 065
     Dates: start: 20100504
  13. MORPHINE [Concomitant]
     Active Substance: MORPHINE
     Indication: PRODUCT USED FOR UNKNOWN INDICATION
     Route: 065
  14. CATHFLO ACTIVASE [Suspect]
     Active Substance: ALTEPLASE
     Indication: GRAFT COMPLICATION

REACTIONS (8)
  - Fatigue [Unknown]
  - Death [Fatal]
  - Pain [Unknown]
  - Neuropathy peripheral [Unknown]
  - Respiratory disorder [Unknown]
  - Emotional disorder [Unknown]
  - Oedema [Unknown]
  - Asthenia [Unknown]
